FAERS Safety Report 22625601 (Version 2)
Quarter: 2023Q2

REPORT INFORMATION
  Report Type: Report from Study
  Country: US (occurrence: US)
  Receive Date: 20230621
  Receipt Date: 20230629
  Transmission Date: 20230722
  Serious: Yes (Hospitalization)
  Sender: FDA-Public Use
  Company Number: US-GILEAD-2023-0632808

PATIENT
  Sex: Female

DRUGS (31)
  1. SACITUZUMAB GOVITECAN-HZIY [Suspect]
     Active Substance: SACITUZUMAB GOVITECAN-HZIY
     Indication: Lung neoplasm malignant
     Dosage: 622 MG, QD
     Route: 042
     Dates: start: 20230530, end: 20230606
  2. ASPIRIN [Concomitant]
     Active Substance: ASPIRIN
     Indication: Prophylaxis
     Route: 048
     Dates: start: 2013
  3. LEVOTHYROXINE [Concomitant]
     Active Substance: LEVOTHYROXINE
     Indication: Hyperthyroidism
     Route: 048
     Dates: start: 2018
  4. LOSARTAN [Concomitant]
     Active Substance: LOSARTAN
     Indication: Hypertension
     Route: 048
     Dates: start: 2019
  5. REVIVA ANTIAGE [Concomitant]
     Indication: Supplementation therapy
     Route: 048
     Dates: start: 2020, end: 20230529
  6. FOLIC ACID [Concomitant]
     Active Substance: FOLIC ACID
     Indication: Supplementation therapy
     Route: 048
     Dates: start: 2022
  7. POLYETHYLENE GLYCOL 3350 [Concomitant]
     Active Substance: POLYETHYLENE GLYCOL 3350
     Indication: Constipation
     Route: 048
     Dates: start: 2022
  8. ACIDOPHILUS [Concomitant]
     Active Substance: LACTOBACILLUS ACIDOPHILUS
     Indication: Supplementation therapy
     Route: 048
     Dates: start: 202209
  9. ELDERBERRY EXTRACT [Concomitant]
     Indication: Supplementation therapy
     Route: 048
     Dates: start: 202301, end: 20230529
  10. MINERALS\VITAMINS [Concomitant]
     Active Substance: MINERALS\VITAMINS
     Indication: Supplementation therapy
     Route: 048
     Dates: start: 202301
  11. ASCORBIC ACID [Concomitant]
     Active Substance: ASCORBIC ACID
     Indication: Supplementation therapy
     Route: 048
     Dates: start: 202301
  12. VITAMIN D NOS [Concomitant]
     Active Substance: VITAMIN D NOS
     Indication: Supplementation therapy
     Route: 048
     Dates: start: 202301
  13. ZINC [Concomitant]
     Active Substance: ZINC
     Indication: Supplementation therapy
     Route: 048
     Dates: start: 202301, end: 20230529
  14. PROCHLORPERAZINE [Concomitant]
     Active Substance: PROCHLORPERAZINE
     Indication: Prophylaxis
     Route: 048
     Dates: start: 20230504
  15. ACETAMINOPHEN [Concomitant]
     Active Substance: ACETAMINOPHEN
     Indication: Supplementation therapy
     Route: 048
     Dates: start: 20230530, end: 20230530
  16. ACETAMINOPHEN [Concomitant]
     Active Substance: ACETAMINOPHEN
     Route: 048
     Dates: start: 20230606, end: 20230606
  17. DEXAMETHASONE [Concomitant]
     Active Substance: DEXAMETHASONE
     Indication: Supplementation therapy
     Route: 042
     Dates: start: 20230530, end: 20230530
  18. DEXAMETHASONE [Concomitant]
     Active Substance: DEXAMETHASONE
     Indication: Prophylaxis
     Route: 048
     Dates: start: 20230530
  19. DEXAMETHASONE [Concomitant]
     Active Substance: DEXAMETHASONE
     Route: 042
     Dates: start: 20230606, end: 20230606
  20. DIPHENHYDRAMINE [Concomitant]
     Active Substance: DIPHENHYDRAMINE
     Indication: Supplementation therapy
     Route: 042
     Dates: start: 20230530, end: 20230530
  21. DIPHENHYDRAMINE [Concomitant]
     Active Substance: DIPHENHYDRAMINE
     Route: 042
     Dates: start: 20230606, end: 20230606
  22. FAMOTIDINE [Concomitant]
     Active Substance: FAMOTIDINE
     Indication: Supplementation therapy
     Route: 042
     Dates: start: 20230530, end: 20230530
  23. FOSAPREPITANT [Concomitant]
     Active Substance: FOSAPREPITANT
     Indication: Supplementation therapy
     Route: 042
     Dates: start: 20230530, end: 20230530
  24. FOSAPREPITANT [Concomitant]
     Active Substance: FOSAPREPITANT
     Route: 042
     Dates: start: 20230606, end: 20230606
  25. LOPERAMIDE [Concomitant]
     Active Substance: LOPERAMIDE
     Indication: Prophylaxis
     Route: 048
     Dates: start: 20230530
  26. ONDANSETRON [Concomitant]
     Active Substance: ONDANSETRON
     Indication: Prophylaxis
     Route: 048
     Dates: start: 20230530
  27. PALONOSETRON [Concomitant]
     Active Substance: PALONOSETRON
     Indication: Supplementation therapy
     Route: 042
     Dates: start: 20230530, end: 20230530
  28. PALONOSETRON [Concomitant]
     Active Substance: PALONOSETRON
     Route: 042
     Dates: start: 20230606, end: 20230606
  29. LACTOBAC [LACTOBACILLUS ACIDOPHILUS] [Concomitant]
     Route: 048
     Dates: start: 202209, end: 20230606
  30. SIMETHICONE (DIMETHICONE) [Concomitant]
     Active Substance: DIMETHICONE
     Indication: Flatulence
     Route: 048
     Dates: start: 20230606
  31. MORPHINE [Concomitant]
     Active Substance: MORPHINE
     Indication: Proctitis
     Route: 042
     Dates: start: 20230612, end: 20230612

REACTIONS (1)
  - Proctitis [Recovered/Resolved with Sequelae]

NARRATIVE: CASE EVENT DATE: 20230612
